FAERS Safety Report 6595839-0 (Version None)
Quarter: 2010Q1

REPORT INFORMATION
  Report Type: 
  Country: None (occurrence: None)
  Receive Date: 20100223
  Receipt Date: 20100216
  Transmission Date: 20100710
  Serious: Yes (Other)
  Sender: FDA-Public Use
  Company Number: US-RB-016774-09

PATIENT
  Age: 58 Year
  Sex: Female

DRUGS (6)
  1. SUBOXONE [Suspect]
     Route: 060
     Dates: start: 20090525, end: 20090613
  2. SUBOXONE [Suspect]
     Route: 060
     Dates: start: 20090614
  3. SUBOXONE [Suspect]
     Route: 060
     Dates: start: 20090601
  4. ATIVAN [Suspect]
     Indication: DRUG USE FOR UNKNOWN INDICATION
     Dosage: DOSING INFORMATION UNKNOWN
  5. TRAZODONE [Suspect]
     Indication: DRUG USE FOR UNKNOWN INDICATION
     Dosage: DOSING INFORMATION UNKNOWN
     Route: 065
  6. ZOLOFT [Concomitant]
     Indication: DRUG USE FOR UNKNOWN INDICATION
     Dosage: DOSING INFORMATION UNKNOWN.
     Route: 065

REACTIONS (9)
  - COORDINATION ABNORMAL [None]
  - DIZZINESS [None]
  - DYSPHEMIA [None]
  - EUPHORIC MOOD [None]
  - FOOD POISONING [None]
  - MEMORY IMPAIRMENT [None]
  - OVERDOSE [None]
  - SUICIDAL IDEATION [None]
  - TREMOR [None]
